FAERS Safety Report 18560354 (Version 2)
Quarter: 2020Q4

REPORT INFORMATION
  Report Type: Report from Study
  Country: US (occurrence: US)
  Receive Date: 20201130
  Receipt Date: 20201214
  Transmission Date: 20210114
  Serious: Yes (Hospitalization, Other)
  Sender: FDA-Public Use
  Company Number: US-EUSA PHARMA (NETHERLANDS) B.V.-2020US000265

PATIENT

DRUGS (1)
  1. SYLVANT [Suspect]
     Active Substance: SILTUXIMAB
     Indication: PANCREATIC CARCINOMA METASTATIC
     Dosage: UNK
     Route: 065

REACTIONS (7)
  - Cachexia [Recovered/Resolved]
  - Hyperbilirubinaemia [Recovered/Resolved]
  - Pulmonary thrombosis [Recovered/Resolved]
  - Metastatic neoplasm [Recovered/Resolved]
  - Renal infarct [Recovered/Resolved]
  - Device related thrombosis [Recovered/Resolved]
  - Flank pain [Recovered/Resolved]

NARRATIVE: CASE EVENT DATE: 20201116
